FAERS Safety Report 9158183 (Version 2)
Quarter: 2013Q1

REPORT INFORMATION
  Report Type: Spontaneous
  Country: US (occurrence: US)
  Receive Date: 20130312
  Receipt Date: 20130328
  Transmission Date: 20140127
  Serious: Yes (Hospitalization, Other)
  Sender: FDA-Public Use
  Company Number: US-GILEAD-2013-0071453

PATIENT
  Age: 66 Year
  Sex: Female

DRUGS (1)
  1. LETAIRIS [Suspect]
     Indication: PULMONARY HYPERTENSION
     Dates: start: 20121113, end: 20130115

REACTIONS (4)
  - Fall [Not Recovered/Not Resolved]
  - Renal failure [Unknown]
  - Pneumonia [Unknown]
  - Asthenia [Unknown]
